FAERS Safety Report 7490654-8 (Version None)
Quarter: 2011Q2

REPORT INFORMATION
  Report Type: 
  Country: None (occurrence: None)
  Receive Date: 20110519
  Receipt Date: 20110507
  Transmission Date: 20111010
  Serious: Yes (Hospitalization)
  Sender: FDA-Public Use
  Company Number: FR-JNJFOC-20100701016

PATIENT
  Age: 77 Year
  Sex: Male

DRUGS (3)
  1. CLADRIBINE [Suspect]
     Indication: HAIRY CELL LEUKAEMIA
     Dosage: EVERY 5 DAYS
     Route: 065
     Dates: start: 20060101
  2. CLADRIBINE [Suspect]
     Route: 065
     Dates: start: 20070101
  3. PENTOSTATIN [Concomitant]
     Indication: HAIRY CELL LEUKAEMIA
     Route: 065
     Dates: start: 20090101

REACTIONS (5)
  - NEUTROPENIA [None]
  - LYMPHOPENIA [None]
  - THROMBOCYTOPENIA [None]
  - PROGRESSIVE MULTIFOCAL LEUKOENCEPHALOPATHY [None]
  - GERSTMANN'S SYNDROME [None]
